FAERS Safety Report 20089888 (Version 1)
Quarter: 2021Q4

REPORT INFORMATION
  Report Type: Spontaneous
  Country: CN (occurrence: CN)
  Receive Date: 20211119
  Receipt Date: 20211119
  Transmission Date: 20220303
  Serious: Yes (Other)
  Sender: FDA-Public Use
  Company Number: CN-AMGEN-CHNSP2021179002

PATIENT
  Age: 34 Year
  Sex: Male

DRUGS (3)
  1. REPATHA [Suspect]
     Active Substance: EVOLOCUMAB
     Indication: Type IIa hyperlipidaemia
     Dosage: 140 MILLIGRAM, Q2WK
     Route: 058
     Dates: start: 2020, end: 20210820
  2. EZETIMIBE [Concomitant]
     Active Substance: EZETIMIBE
     Dosage: UNK UNK, UNK
     Route: 065
  3. PROBUCOL [Concomitant]
     Active Substance: PROBUCOL
     Dosage: UNK
     Route: 065

REACTIONS (2)
  - Heart transplant [Unknown]
  - Sneezing [Unknown]

NARRATIVE: CASE EVENT DATE: 20211001
